FAERS Safety Report 4288876-2 (Version None)
Quarter: 2004Q1

REPORT INFORMATION
  Report Type: 
  Country: None (occurrence: None)
  Receive Date: 20040206
  Receipt Date: 20040206
  Transmission Date: 20041129
  Serious: Yes (Hospitalization)
  Sender: FDA-Public Use
  Company Number: None

PATIENT
  Sex: Male

DRUGS (8)
  1. DOCETAXEL AVENTIS [Suspect]
     Indication: NON-SMALL CELL LUNG CANCER
     Dosage: 20MG/M2 WEEKLY INTRAVENOUS
     Route: 042
     Dates: start: 20031124, end: 20040105
  2. CARBOPLATIN [Suspect]
     Indication: NON-SMALL CELL LUNG CANCER
     Dosage: AUC 2 WEEKLY INTRAVENOUS
     Route: 042
     Dates: start: 20031124, end: 20040105
  3. ASPIRIN [Concomitant]
  4. TOPROL-XL [Concomitant]
  5. HYTRIN [Concomitant]
  6. DIOVAN [Concomitant]
  7. KLOR-CON [Concomitant]
  8. LASIX [Concomitant]

REACTIONS (8)
  - BREATH SOUNDS DECREASED [None]
  - CHEST PAIN [None]
  - CHEST WALL PAIN [None]
  - COUGH [None]
  - DEEP VEIN THROMBOSIS [None]
  - PULMONARY EMBOLISM [None]
  - RALES [None]
  - TENDERNESS [None]
